FAERS Safety Report 11797010 (Version 2)
Quarter: 2015Q4

REPORT INFORMATION
  Report Type: Spontaneous
  Country: US (occurrence: US)
  Receive Date: 20151203
  Receipt Date: 20151208
  Transmission Date: 20160305
  Serious: Yes (Death, Other)
  Sender: FDA-Public Use
  Company Number: US-SUNOVION-2015SUN001103

PATIENT
  Age: 56 Year
  Sex: Male
  Weight: 111.57 kg

DRUGS (3)
  1. BENZTROPINE [Concomitant]
     Active Substance: BENZTROPINE
     Dosage: UNK
     Dates: start: 20150811
  2. LATUDA [Suspect]
     Active Substance: LURASIDONE HYDROCHLORIDE
     Indication: PRODUCT USED FOR UNKNOWN INDICATION
     Dosage: 80 MG, UNK
     Route: 048
  3. GABAPENTIN. [Concomitant]
     Active Substance: GABAPENTIN
     Indication: ANXIETY
     Dosage: UNK
     Dates: start: 20150811

REACTIONS (6)
  - General physical health deterioration [Unknown]
  - Loss of consciousness [Unknown]
  - Malaise [Unknown]
  - Respiratory arrest [Unknown]
  - Death [Fatal]
  - Dyspnoea [Unknown]

NARRATIVE: CASE EVENT DATE: 201511
